FAERS Safety Report 14590703 (Version 2)
Quarter: 2019Q4

REPORT INFORMATION
  Report Type: Report from Study
  Country: None (occurrence: ES)
  Receive Date: 20180302
  Receipt Date: 20191104
  Transmission Date: 20200122
  Serious: Yes (Other)
  Sender: FDA-Public Use
  Company Number: ES-BIOVITRUM-2012ES0391

PATIENT
  Age: 18 Year
  Sex: Male
  Weight: 85 kg

DRUGS (5)
  1. ORFADIN [Suspect]
     Active Substance: NITISINONE
     Dates: start: 20171130, end: 20180412
  2. ORFADIN [Suspect]
     Active Substance: NITISINONE
     Dates: start: 20180412
  3. ORFADIN [Suspect]
     Active Substance: NITISINONE
     Dates: start: 20130327
  4. ORFADIN [Suspect]
     Active Substance: NITISINONE
     Dates: start: 20160707, end: 20171130
  5. ORFADIN [Suspect]
     Active Substance: NITISINONE
     Indication: TYROSINAEMIA
     Dates: start: 19960814, end: 20130326

REACTIONS (4)
  - Amino acid level decreased [Unknown]
  - Amino acid level increased [Recovered/Resolved]
  - Succinylacetone increased [Unknown]
  - Mental impairment [Unknown]

NARRATIVE: CASE EVENT DATE: 20140624
